FAERS Safety Report 6261678-3 (Version None)
Quarter: 2009Q3

REPORT INFORMATION
  Report Type: 
  Country: None (occurrence: None)
  Receive Date: 20090709
  Receipt Date: 20090702
  Transmission Date: 20100115
  Serious: Yes (Other)
  Sender: FDA-Public Use
  Company Number: DK-ABBOTT-09P-044-0583300-00

PATIENT
  Age: 74 Year
  Sex: Female

DRUGS (1)
  1. KLACID [Suspect]
     Indication: DIVERTICULITIS
     Dates: start: 20090601, end: 20090701

REACTIONS (2)
  - DYSPHAGIA [None]
  - OROPHARYNGEAL BLISTERING [None]
